FAERS Safety Report 24359545 (Version 2)
Quarter: 2024Q4

REPORT INFORMATION
  Report Type: Spontaneous
  Country: US (occurrence: US)
  Receive Date: 20240924
  Receipt Date: 20241110
  Transmission Date: 20250114
  Serious: No
  Sender: SANOFI AVENTIS
  Company Number: US-SA-2024SA271281

PATIENT
  Age: 65 Year
  Sex: Female

DRUGS (1)
  1. DUPIXENT [Suspect]
     Active Substance: DUPILUMAB
     Indication: Psoriasis
     Dosage: 300 MG, QOW
     Route: 058
     Dates: start: 20240521

REACTIONS (3)
  - Pruritus [Unknown]
  - Lacrimation increased [Unknown]
  - Product use in unapproved indication [Unknown]

NARRATIVE: CASE EVENT DATE: 20240101
